FAERS Safety Report 23306234 (Version 1)
Quarter: 2023Q4

REPORT INFORMATION
  Report Type: Report from Study
  Country: US (occurrence: US)
  Receive Date: 20231218
  Receipt Date: 20231218
  Transmission Date: 20240110
  Serious: No
  Sender: FDA-Public Use
  Company Number: US-ALXN-A202307915

PATIENT
  Sex: Male

DRUGS (1)
  1. ULTOMIRIS [Suspect]
     Active Substance: RAVULIZUMAB-CWVZ
     Indication: Myasthenia gravis
     Dosage: UNK
     Route: 042

REACTIONS (8)
  - Abdominal discomfort [Unknown]
  - Arthritis [Unknown]
  - Hypoaesthesia [Unknown]
  - Dyspepsia [Unknown]
  - Headache [Unknown]
  - Rash [Unknown]
  - Peripheral swelling [Unknown]
  - Ecchymosis [Unknown]
